FAERS Safety Report 12449172 (Version 1)
Quarter: 2016Q2

REPORT INFORMATION
  Report Type: Spontaneous
  Country: FR (occurrence: FR)
  Receive Date: 20160608
  Receipt Date: 20160608
  Transmission Date: 20160815
  Serious: Yes (Hospitalization)
  Sender: FDA-Public Use
  Company Number: FR-ROCHE-1771408

PATIENT
  Age: 74 Year
  Sex: Female
  Weight: 54 kg

DRUGS (13)
  1. EFFEXOR [Concomitant]
     Active Substance: VENLAFAXINE HYDROCHLORIDE
  2. MORPHINE [Suspect]
     Active Substance: MORPHINE
     Indication: PRODUCT USED FOR UNKNOWN INDICATION
     Route: 048
     Dates: start: 20160514, end: 20160515
  3. LEVOTHYROX [Concomitant]
     Active Substance: LEVOTHYROXINE
  4. INEXIUM [Concomitant]
     Active Substance: ESOMEPRAZOLE
  5. LEXOMIL [Concomitant]
     Active Substance: BROMAZEPAM
     Route: 065
  6. DOLIPRANE [Concomitant]
     Active Substance: ACETAMINOPHEN
  7. OMEPRAZOLE. [Concomitant]
     Active Substance: OMEPRAZOLE
  8. VALIUM [Suspect]
     Active Substance: DIAZEPAM
     Indication: PRODUCT USED FOR UNKNOWN INDICATION
     Route: 048
     Dates: start: 20160514, end: 20160515
  9. COZAAR [Concomitant]
     Active Substance: LOSARTAN POTASSIUM
  10. XOLAAM [Concomitant]
     Active Substance: ALUMINUM HYDROXIDE\MAGNESIUM HYDROXIDE
  11. UVEDOSE [Concomitant]
     Active Substance: CHOLECALCIFEROL
  12. NOCTAMIDE [Concomitant]
     Active Substance: LORMETAZEPAM
  13. SPASFON (FRANCE) [Concomitant]
     Active Substance: PHLOROGLUCINOL

REACTIONS (2)
  - Toxicity to various agents [Recovered/Resolved]
  - Coma [Recovered/Resolved]

NARRATIVE: CASE EVENT DATE: 20160515
